FAERS Safety Report 5493194-0 (Version None)
Quarter: 2007Q4

REPORT INFORMATION
  Report Type: 
  Country: None (occurrence: None)
  Receive Date: 20071023
  Receipt Date: 20071019
  Transmission Date: 20080405
  Serious: Yes (Hospitalization)
  Sender: FDA-Public Use
  Company Number: A0688751A

PATIENT
  Age: 79 Year
  Sex: Female

DRUGS (9)
  1. AVANDIA [Suspect]
     Indication: TYPE 2 DIABETES MELLITUS
     Dosage: 8MG PER DAY
     Route: 048
     Dates: start: 20020101
  2. LOVASTATIN [Concomitant]
  3. EYE DROPS [Concomitant]
  4. ARTIFICIAL TEARS [Concomitant]
  5. GLYBURIDE [Concomitant]
  6. FUROSEMIDE [Concomitant]
  7. FERROUS SULFATE TAB [Concomitant]
  8. LISINOPRIL [Concomitant]
  9. IBUPROFEN [Concomitant]

REACTIONS (5)
  - CELLULITIS [None]
  - ERYTHEMA [None]
  - FALL [None]
  - LOWER LIMB FRACTURE [None]
  - PRURITUS [None]
